FAERS Safety Report 5466373-6 (Version None)
Quarter: 2007Q3

REPORT INFORMATION
  Report Type: 
  Country: None (occurrence: None)
  Receive Date: 20070920
  Receipt Date: 20070912
  Transmission Date: 20080115
  Serious: Yes (Other)
  Sender: FDA-Public Use
  Company Number: CHPA2007US09590

PATIENT
  Age: 50 Year
  Sex: Female
  Weight: 103.4 kg

DRUGS (3)
  1. BENEFIBER W/ WHEAT DEXTRIN [Suspect]
     Indication: FAECES HARD
     Dosage: 9 TSP, QD FOR ABOUT 4 WEEKS, ORAL
     Route: 048
  2. METRONIDAZOLE [Suspect]
  3. CIPROFLOXACIN [Suspect]

REACTIONS (6)
  - COLITIS [None]
  - DIVERTICULITIS [None]
  - DRUG INEFFECTIVE [None]
  - FAECES HARD [None]
  - OVERDOSE [None]
  - RECTAL HAEMORRHAGE [None]
